FAERS Safety Report 7305641-X (Version None)
Quarter: 2011Q1

REPORT INFORMATION
  Report Type: 
  Country: None (occurrence: None)
  Receive Date: 20110222
  Receipt Date: 20110214
  Transmission Date: 20110831
  Serious: Yes (Hospitalization, Congenital Anomaly)
  Sender: FDA-Public Use
  Company Number: A0681908A

PATIENT
  Sex: Male
  Weight: 4.6 kg

DRUGS (2)
  1. PAXIL [Suspect]
     Indication: DEPRESSION
     Dosage: 20MG PER DAY
     Route: 064
     Dates: start: 20020503, end: 20030801
  2. PRENATAL VITAMINS [Concomitant]
     Route: 064
     Dates: start: 20020601, end: 20030601

REACTIONS (6)
  - DRUG EXPOSURE DURING PREGNANCY [None]
  - SCAPHOCEPHALY [None]
  - SYNOSTOSIS [None]
  - MENTAL DISORDER [None]
  - LARGE FOR DATES BABY [None]
  - CRANIOSYNOSTOSIS [None]
